FAERS Safety Report 10461046 (Version 2)
Quarter: 2017Q4

REPORT INFORMATION
  Report Type: Report from Study
  Country: US (occurrence: US)
  Receive Date: 20140918
  Receipt Date: 20171013
  Transmission Date: 20180320
  Serious: Yes (Hospitalization, Other)
  Sender: FDA-Public Use
  Company Number: US-SA-2014SA123113

PATIENT
  Age: 68 Year
  Sex: Female

DRUGS (5)
  1. FABRAZYME [Suspect]
     Active Substance: AGALSIDASE BETA
     Indication: FABRY^S DISEASE
     Route: 042
     Dates: start: 20050721
  2. BENADRYL [Concomitant]
     Active Substance: DIPHENHYDRAMINE HYDROCHLORIDE
     Indication: PREMEDICATION
  3. FABRAZYME [Suspect]
     Active Substance: AGALSIDASE BETA
     Indication: FABRY^S DISEASE
     Route: 042
     Dates: start: 20050721
  4. FABRAZYME [Suspect]
     Active Substance: AGALSIDASE BETA
     Indication: FABRY^S DISEASE
     Dosage: DOSE: 60?FREQUENCY: Q2
     Route: 041
     Dates: start: 20090211
  5. ACETAMINOPHEN. [Concomitant]
     Active Substance: ACETAMINOPHEN
     Indication: PREMEDICATION

REACTIONS (7)
  - Pain in extremity [Recovering/Resolving]
  - Kidney infection [Recovering/Resolving]
  - Procedural haemorrhage [Recovering/Resolving]
  - Abdominal pain [Recovering/Resolving]
  - Viral infection [Recovering/Resolving]
  - Cardiac pacemaker replacement [Recovering/Resolving]
  - Medical device site pain [Recovering/Resolving]

NARRATIVE: CASE EVENT DATE: 2017
